FAERS Safety Report 5602189-5 (Version None)
Quarter: 2008Q1

REPORT INFORMATION
  Report Type: 
  Country: None (occurrence: None)
  Receive Date: 20080125
  Receipt Date: 20080115
  Transmission Date: 20080703
  Serious: Yes (Other)
  Sender: FDA-Public Use
  Company Number: US-ASTRAZENECA-2006UW23502

PATIENT
  Age: 35 Year
  Sex: Male
  Weight: 84.1 kg

DRUGS (2)
  1. SEROQUEL [Suspect]
     Indication: SCHIZOPHRENIA
     Route: 048
     Dates: start: 20020416
  2. ZYPREXA [Concomitant]
     Dates: start: 20010611, end: 20020501

REACTIONS (5)
  - BLOOD CHOLESTEROL INCREASED [None]
  - CHEST PAIN [None]
  - DIABETES MELLITUS [None]
  - MYALGIA [None]
  - TRANSIENT ISCHAEMIC ATTACK [None]
